FAERS Safety Report 17948303 (Version 1)
Quarter: 2020Q2

REPORT INFORMATION
  Report Type: Spontaneous
  Country: US (occurrence: US)
  Receive Date: 20200626
  Receipt Date: 20200626
  Transmission Date: 20200714
  Serious: Yes (Life-Threatening)
  Sender: FDA-Public Use
  Company Number: None

PATIENT
  Age: 74 Year
  Sex: Male
  Weight: 91 kg

DRUGS (10)
  1. ALLOPURINOL 300 MG BID [Concomitant]
  2. ENOXAPARIN 40 MG QHS [Concomitant]
  3. OMEPRAZOLE 20 QD [Concomitant]
  4. GUAIFENESIN 600 MG Q12H [Concomitant]
  5. ALBUTEROL MDI Q6HR PRN [Concomitant]
  6. HUMALOG SSI [Concomitant]
  7. REMDESIVIR. [Suspect]
     Active Substance: REMDESIVIR
     Indication: COVID-19
     Dates: start: 20200617, end: 20200619
  8. ASPIRIN 81 MG QD [Concomitant]
  9. MELATONIN 5MG QHS [Concomitant]
  10. LEVOTHYROXINE 137MCG QD [Concomitant]

REACTIONS (1)
  - Liver function test increased [None]

NARRATIVE: CASE EVENT DATE: 20200619
